FAERS Safety Report 4302321-X (Version None)
Quarter: 2004Q1

REPORT INFORMATION
  Report Type: 
  Country: None (occurrence: None)
  Receive Date: 20040223
  Receipt Date: 20040210
  Transmission Date: 20041129
  Serious: Yes (Life-Threatening, Other)
  Sender: FDA-Public Use
  Company Number: WAES 0402DEU00054

PATIENT
  Age: 72 Year
  Sex: Male
  Weight: 96 kg

DRUGS (40)
  1. ACETAMINOPHEN [Suspect]
  2. AMIODARONE [Suspect]
  3. AMLODIPINE MALEATE [Suspect]
  4. ASPIRIN [Suspect]
  5. ATORVASTATIN CALCIUM [Suspect]
     Indication: HYPERLIPIDAEMIA
  6. CAPTOPRIL [Suspect]
  7. CEFOTIAM [Suspect]
  8. CLONIDINE [Suspect]
  9. DEXAMETHASONE [Suspect]
  10. DEXPANTHENOL [Suspect]
  11. DIAZEPAM [Suspect]
  12. DOPAMINE HYDROCHLORIDE [Suspect]
  13. ENALAPRIL MALEATE [Suspect]
  14. ENOXIMONE [Suspect]
  15. EPINEPHRINE HYDROCHLORIDE [Suspect]
  16. ETOMIDATE [Suspect]
  17. FENOTEROL AND IPRATROPIUM BROMIDE [Suspect]
  18. FLUNITRAZEPAM [Suspect]
  19. FUROSEMIDE [Suspect]
  20. ISOSORBIDE DINITRATE [Suspect]
  21. LIDOCAINE [Suspect]
  22. LORMETAZEPAM [Suspect]
  23. COZAAR [Suspect]
  24. METOCLOPRAMIDE [Suspect]
  25. METOPROLOL [Suspect]
  26. MOLSIDOMINE [Suspect]
  27. NEOSTIGMINE BROMIDE [Suspect]
  28. NIFEDIPINE [Suspect]
  29. NITROGLYCERIN [Suspect]
  30. NOREPINEPHRINE HYDROCHLORIDE [Suspect]
  31. OMEPRAZOLE [Suspect]
  32. ONDANSETRON [Suspect]
  33. PANCURONIUM BROMIDE [Suspect]
  34. PIPERACILLIN SODIUM AND TAZOBACTAM SODIUM [Suspect]
  35. PIRITRAMIDE [Suspect]
  36. PROPOFOL [Suspect]
  37. RADIOGRAPHIC CONTRAST MEDIUM (UNSPECIFIED) [Suspect]
  38. ZOCOR [Suspect]
     Indication: HYPERLIPIDAEMIA
     Route: 048
  39. SUFENTANIL [Suspect]
  40. VERAPAMIL [Suspect]

REACTIONS (4)
  - DRUG INTERACTION [None]
  - PANCREATITIS [None]
  - POST PROCEDURAL COMPLICATION [None]
  - RHABDOMYOLYSIS [None]
